FAERS Safety Report 25996341 (Version 1)
Quarter: 2025Q4

REPORT INFORMATION
  Report Type: Spontaneous
  Country: CN (occurrence: None)
  Receive Date: 20251104
  Receipt Date: 20251104
  Transmission Date: 20260117
  Serious: Yes (Hospitalization)
  Sender: AMERICAN REGENT
  Company Number: CN-AMERICAN REGENT INC-2025003925

PATIENT
  Age: 61 Year
  Sex: Female
  Weight: 52.6 kg

DRUGS (1)
  1. VENOFER [Suspect]
     Active Substance: IRON SUCROSE
     Indication: Nephrogenic anaemia
     Dosage: 100 MILLIGRAM, OD
     Dates: start: 20251010, end: 20251011

REACTIONS (2)
  - Pneumonia [Recovering/Resolving]
  - Off label use [Unknown]

NARRATIVE: CASE EVENT DATE: 20251010
